FAERS Safety Report 18166034 (Version 1)
Quarter: 2020Q3

REPORT INFORMATION
  Report Type: Spontaneous
  Country: US (occurrence: US)
  Receive Date: 20200818
  Receipt Date: 20200818
  Transmission Date: 20201103
  Serious: No
  Sender: FDA-Public Use
  Company Number: US-OTSUKA-2018_023824

PATIENT
  Sex: Male

DRUGS (2)
  1. ABILIFY [Suspect]
     Active Substance: ARIPIPRAZOLE
     Indication: BIPOLAR DISORDER
     Dosage: 20 MG, QD
     Route: 065
     Dates: start: 20140925, end: 20161118
  2. ARIPIPRAZOLE. [Concomitant]
     Active Substance: ARIPIPRAZOLE
     Indication: PRODUCT USED FOR UNKNOWN INDICATION
     Dosage: UNK
     Route: 065
     Dates: start: 20140925, end: 20161118

REACTIONS (21)
  - Injury [Unknown]
  - Alanine aminotransferase increased [Recovered/Resolved]
  - Economic problem [Unknown]
  - Blood creatinine decreased [Not Recovered/Not Resolved]
  - Blood magnesium decreased [Unknown]
  - Mental disorder [Unknown]
  - Monocyte count abnormal [Unknown]
  - Blood urea nitrogen/creatinine ratio decreased [Not Recovered/Not Resolved]
  - Alanine aminotransferase increased [Unknown]
  - Compulsive shopping [Unknown]
  - Glycosylated haemoglobin increased [Not Recovered/Not Resolved]
  - Obsessive-compulsive disorder [Unknown]
  - Blood testosterone decreased [Unknown]
  - Blood sodium decreased [Not Recovered/Not Resolved]
  - Red blood cell count increased [Unknown]
  - Mean cell volume decreased [Recovering/Resolving]
  - Blood potassium increased [Unknown]
  - Gambling disorder [Not Recovered/Not Resolved]
  - Myeloblast count increased [Unknown]
  - Blood chloride decreased [Unknown]
  - Loss of employment [Unknown]

NARRATIVE: CASE EVENT DATE: 20141007
